FAERS Safety Report 8050785-0 (Version None)
Quarter: 2012Q1

REPORT INFORMATION
  Report Type: 
  Country: None (occurrence: None)
  Receive Date: 20120117
  Receipt Date: 20120104
  Transmission Date: 20120608
  Serious: Yes (Other)
  Sender: FDA-Public Use
  Company Number: GB-GILEAD-2012-0048757

PATIENT
  Sex: Female

DRUGS (9)
  1. HYDROCHLOROTHIAZIDE [Concomitant]
     Dosage: 25MG IN THE MORNING
  2. AMBRISENTAN [Suspect]
     Indication: PRODUCT USED FOR UNKNOWN INDICATION
     Route: 065
     Dates: start: 20111214, end: 20111221
  3. LITHIUM CARBONATE [Concomitant]
  4. FRUSEMIDE                          /00032601/ [Concomitant]
     Dosage: 160MG TWICE PER DAY
  5. NEXIUM [Concomitant]
     Dosage: 20MG IN THE MORNING
  6. CHLORVESCENT [Concomitant]
  7. AMILORIDE HYDROCHLORIDE [Concomitant]
     Dosage: 5MG PER DAY
  8. SLOW-K [Concomitant]
  9. LEVOTHYROXINE SODIUM [Concomitant]

REACTIONS (3)
  - BLISTER [None]
  - ERYTHEMA [None]
  - RASH [None]
